FAERS Safety Report 7688229-0 (Version None)
Quarter: 2011Q3

REPORT INFORMATION
  Report Type: 
  Country: None (occurrence: None)
  Receive Date: 20110817
  Receipt Date: 20110624
  Transmission Date: 20111222
  Serious: No
  Sender: FDA-Public Use
  Company Number: US-GLAXOSMITHKLINE-A0933928A

PATIENT
  Sex: Male

DRUGS (1)
  1. VOTRIENT [Suspect]
     Indication: RENAL CELL CARCINOMA
     Dosage: 800MG PER DAY
     Route: 065
     Dates: start: 20110201

REACTIONS (6)
  - SENSORY DISTURBANCE [None]
  - HYPOAESTHESIA [None]
  - ADVERSE DRUG REACTION [None]
  - MYALGIA [None]
  - FATIGUE [None]
  - OEDEMA PERIPHERAL [None]
